FAERS Safety Report 7114617-7 (Version None)
Quarter: 2010Q4

REPORT INFORMATION
  Report Type: 
  Country: None (occurrence: None)
  Receive Date: 20101121
  Receipt Date: 20101108
  Transmission Date: 20110411
  Serious: Yes (Hospitalization, Other)
  Sender: FDA-Public Use
  Company Number: JP-ELI_LILLY_AND_COMPANY-JP201010004050

PATIENT
  Age: 76 Year
  Sex: Female

DRUGS (5)
  1. ZYPREXA [Suspect]
     Dosage: 5 MG, DAILY (1/D)
     Route: 048
     Dates: start: 20100917, end: 20101010
  2. ZOLOFT [Concomitant]
     Dosage: 25 MG, DAILY (1/D)
     Route: 048
     Dates: start: 20100917, end: 20100923
  3. ZOLOFT [Concomitant]
     Dosage: 50 MG, DAILY (1/D)
     Route: 048
     Dates: start: 20100924, end: 20101007
  4. ZOLOFT [Concomitant]
     Dosage: 100 MG, DAILY (1/D)
     Route: 048
     Dates: start: 20101008, end: 20101010
  5. ARICEPT [Concomitant]
     Dosage: 3 MG, DAILY (1/D)
     Route: 048
     Dates: start: 20100924, end: 20101010

REACTIONS (1)
  - HYPOGLYCAEMIA [None]
